FAERS Safety Report 13408721 (Version 1)
Quarter: 2017Q2

REPORT INFORMATION
  Report Type: Spontaneous
  Country: US (occurrence: US)
  Receive Date: 20170406
  Receipt Date: 20170406
  Transmission Date: 20170830
  Serious: No
  Sender: FDA-Public Use
  Company Number: None

PATIENT
  Age: 42 Year
  Sex: Female

DRUGS (1)
  1. SALONPAS LIDOCAINE PAIN RELIEVING [Suspect]
     Active Substance: LIDOCAINE
     Indication: MYALGIA
     Dosage: 1 PATCH(ES) EVERY 8 HOURS TRANSDERMAL
     Route: 062
     Dates: start: 20170327, end: 20170327

REACTIONS (3)
  - Application site erythema [None]
  - Application site urticaria [None]
  - Application site vesicles [None]

NARRATIVE: CASE EVENT DATE: 20170328
